FAERS Safety Report 7238421-4 (Version None)
Quarter: 2011Q1

REPORT INFORMATION
  Report Type: 
  Country: None (occurrence: None)
  Receive Date: 20110121
  Receipt Date: 20110113
  Transmission Date: 20110831
  Serious: Yes (Hospitalization)
  Sender: FDA-Public Use
  Company Number: AU-MERCK-1101USA01432

PATIENT
  Age: 83 Year
  Sex: Female
  Weight: 68 kg

DRUGS (6)
  1. ASASANTIN [Concomitant]
     Route: 065
  2. SOTALOL HYDROCHLORIDE [Concomitant]
     Route: 065
  3. METFORMIN HYDROCHLORIDE [Concomitant]
     Route: 065
  4. OLMETEC [Concomitant]
     Route: 065
  5. ACTONEL [Concomitant]
     Route: 065
  6. ZETIA [Suspect]
     Route: 048
     Dates: start: 20100315

REACTIONS (2)
  - LIVER FUNCTION TEST ABNORMAL [None]
  - JAUNDICE [None]
